FAERS Safety Report 8812647 (Version 2)
Quarter: 2012Q4

REPORT INFORMATION
  Report Type: 
  Country: JP (occurrence: JP)
  Receive Date: 20120927
  Receipt Date: 20121011
  Transmission Date: 20130627
  Serious: Yes (Disabling, Other)
  Sender: FDA-Public Use
  Company Number: JP-BAXTER-2012BAX018042

PATIENT
  Age: 48 Year
  Sex: Male

DRUGS (5)
  1. CYCLOPHOSPHAMIDE [Suspect]
     Indication: INTRAVASCULAR LARGE B-CELL LYMPHOMA
     Dates: start: 200906, end: 201001
  2. PREDONINE [Suspect]
     Indication: INTRAVASCULAR LARGE B-CELL LYMPHOMA
     Dates: start: 200906, end: 201001
  3. DOXORUBICIN HYDROCHLORIDE [Suspect]
     Indication: INTRAVASCULAR LARGE B-CELL LYMPHOMA
     Dates: start: 200906, end: 201001
  4. VINCRISTINE SULFATE [Suspect]
     Indication: INTRAVASCULAR LARGE B-CELL LYMPHOMA
     Dates: start: 200906, end: 201001
  5. RITUXIMAB [Suspect]
     Indication: INTRAVASCULAR LARGE B-CELL LYMPHOMA
     Dates: start: 200907, end: 201001

REACTIONS (2)
  - Radiation retinopathy [Not Recovered/Not Resolved]
  - Optic neuropathy [Not Recovered/Not Resolved]
